FAERS Safety Report 5304119-2 (Version None)
Quarter: 2007Q2

REPORT INFORMATION
  Report Type: 
  Country: None (occurrence: None)
  Receive Date: 20070423
  Receipt Date: 20070411
  Transmission Date: 20071010
  Serious: Yes (Other)
  Sender: FDA-Public Use
  Company Number: PHBS2007ES06819

PATIENT
  Age: 73 Year
  Sex: Male

DRUGS (2)
  1. HEMODIALYSIS [Concomitant]
  2. BACLOFEN [Suspect]
     Indication: HICCUPS
     Dosage: 5 MG/DAY
     Route: 065

REACTIONS (1)
  - ENCEPHALOPATHY [None]
